FAERS Safety Report 10997313 (Version 1)
Quarter: 2015Q1

REPORT INFORMATION
  Report Type: Spontaneous
  Country: US (occurrence: None)
  Receive Date: 20150331
  Receipt Date: 20150331
  Transmission Date: 20150721
  Serious: Yes (Other)
  Sender: FDA-Public Use
  Company Number: PHEH2014US019253

PATIENT
  Age: 76 Year
  Sex: Female
  Weight: 64 kg

DRUGS (2)
  1. NAMENDA [Concomitant]
     Active Substance: MEMANTINE HYDROCHLORIDE
     Indication: DEMENTIA
  2. EXELON PATCH [Suspect]
     Active Substance: RIVASTIGMINE
     Indication: DEMENTIA
     Dosage: PER 24 HOURS
     Route: 062
     Dates: start: 201210, end: 201409

REACTIONS (1)
  - Syncope [None]

NARRATIVE: CASE EVENT DATE: 201408
